FAERS Safety Report 17119716 (Version 1)
Quarter: 2019Q4

REPORT INFORMATION
  Report Type: Spontaneous
  Country: GB (occurrence: GB)
  Receive Date: 20191206
  Receipt Date: 20191206
  Transmission Date: 20200122
  Serious: Yes (Other)
  Sender: FDA-Public Use
  Company Number: GB-TEVA-2019-GB-1146685

PATIENT
  Age: 66 Year
  Sex: Female
  Weight: 132 kg

DRUGS (28)
  1. CLARITHROMYCIN. [Concomitant]
     Active Substance: CLARITHROMYCIN
     Dosage: 1 DOSAGE FORMS 12 HOURS
     Dates: start: 20190927, end: 20191007
  2. LEVOTHYROXINE. [Concomitant]
     Active Substance: LEVOTHYROXINE
     Dosage: EACH MORNING. 1 DOSAGE FORMS 1 DAYS
     Dates: start: 20190308
  3. PREDNISOLONE. [Concomitant]
     Active Substance: PREDNISOLONE
     Dosage: REDUCING COURSE- FOR 3 DAY. 3 DOSAGE FORMS 1 DAYS
     Dates: start: 20190903
  4. TEMAZEPAM. [Suspect]
     Active Substance: TEMAZEPAM
     Dosage: AT NIGHT. , 10 MG
     Dates: start: 20191029
  5. SEEBRI BREEZHALER [Concomitant]
     Active Substance: GLYCOPYRROLATE
     Dosage: 1 DOSAGE FORMS 1 DAYS
     Route: 055
     Dates: start: 20190308
  6. FOLIC ACID. [Concomitant]
     Active Substance: FOLIC ACID
     Dosage: 1 DOSAGE FORMS 1 DAYS
     Dates: start: 20190903, end: 20191001
  7. PARAFFIN WHITE SOFT [Concomitant]
     Dosage: USE AS NEEDED.
     Dates: start: 20190311
  8. PARACETAMOL [Concomitant]
     Active Substance: ACETAMINOPHEN
     Dosage: TAKE 1 OR 2 4 TIMES/DAY WHEN REQUIRED
     Dates: start: 20190308
  9. COCODAMOL [Concomitant]
     Active Substance: ACETAMINOPHEN\CODEINE PHOSPHATE
     Dosage: 1-2 TO BE TAKEN THREE TIMES DAILY.
     Dates: start: 20190308
  10. FUROSEMIDE. [Concomitant]
     Active Substance: FUROSEMIDE
     Dosage: EACH MORNING ALONG WITH 40 MG TABLETS.1 DOSAGE FORMS 1 DAYS
     Dates: start: 20190308
  11. DULOXETINE. [Concomitant]
     Active Substance: DULOXETINE
     Dosage: 1 DOSAGE FORMS 1 DAYS
     Dates: start: 20190308
  12. FEXOFENADINE [Concomitant]
     Active Substance: FEXOFENADINE HYDROCHLORIDE
     Dosage: 2 DOSAGE FORMS 1 DAYS
     Dates: start: 20190308
  13. VOLTAROL [Concomitant]
     Active Substance: DICLOFENAC SODIUM
     Dosage: APPLY., 3 DOSAGE FORMS 1 DAYS
     Dates: start: 20190710
  14. SYMBICORT [Concomitant]
     Active Substance: BUDESONIDE\FORMOTEROL FUMARATE DIHYDRATE
     Dosage: USE AS DIRECTED.
     Dates: start: 20190308
  15. SIMVASTATIN. [Concomitant]
     Active Substance: SIMVASTATIN
     Dosage: AT NIGHT. 1 DOSAGE FORMS 1 DAYS
     Dates: start: 20190308
  16. ACETYLSALICYLIC ACID [Concomitant]
     Active Substance: ASPIRIN
     Dosage: 1 DOSAGE FORMS 1 DAYS
     Dates: start: 20190308
  17. DOXYCYCLINE. [Concomitant]
     Active Substance: DOXYCYCLINE
     Dosage: TWO NOW THEN ONE DAILY.
     Dates: start: 20190903, end: 20190910
  18. CALCIPOTRIOL [Concomitant]
     Active Substance: CALCIPOTRIENE
     Indication: PSORIASIS
     Dosage: APPLY AS DIRECTED. 1 DOSAGE FORMS 1 DAYS
     Dates: start: 20190308
  19. PREGABALIN. [Concomitant]
     Active Substance: PREGABALIN
     Dosage: TAKE UP TO 3 THREE TIMES A DAY.
     Dates: start: 20190308
  20. ZOPICLONE [Concomitant]
     Active Substance: ZOPICLONE
     Dosage: TAKE ONE TO TWO  AT NIGHT.
     Dates: start: 20190808, end: 20190822
  21. FUSIDIC ACID [Concomitant]
     Active Substance: FUSIDIC ACID
     Dosage: USE AS DIRECTED- TWICE DAILY ON RED /SORE ELBOW...
     Dates: start: 20190903, end: 20191001
  22. VENTOLIN [Concomitant]
     Active Substance: ALBUTEROL SULFATE
     Dosage: 2 DOSAGE FORMS
     Route: 055
     Dates: start: 20190308
  23. CETRABEN EMOLLIENT CREAM [Concomitant]
     Indication: DRY SKIN
     Dosage: USE ALL OVER. 2 DOSAGE FORMS 1 DAYS
     Route: 061
     Dates: start: 20190308
  24. CODEINE PHOSPHATE [Concomitant]
     Active Substance: CODEINE PHOSPHATE
     Dosage: 1-2 TO BE TAKEN FOUR TIMES DAILY.
     Dates: start: 20190308
  25. ENSTILAR [Concomitant]
     Active Substance: BETAMETHASONE DIPROPIONATE\CALCIPOTRIENE HYDRATE
     Dosage: APPLY ONCE DAILY. 1 DOSAGE FORMS
     Dates: start: 20190308
  26. HYDROXOCOBALAMIN [Concomitant]
     Active Substance: HYDROXOCOBALAMIN
     Dosage: USE AS DIRECTED.
     Dates: start: 20190904
  27. ADCAL [Concomitant]
     Dosage: 4 DOSAGE FORMS 1 DAYS
     Dates: start: 20190308
  28. RAMIPRIL. [Concomitant]
     Active Substance: RAMIPRIL
     Dosage: 1 DOSAGE FORMS 1 DAYS
     Dates: start: 20190308

REACTIONS (2)
  - Respiration abnormal [Recovered/Resolved]
  - Dry mouth [Unknown]

NARRATIVE: CASE EVENT DATE: 20191030
